FAERS Safety Report 7489150-3 (Version None)
Quarter: 2011Q2

REPORT INFORMATION
  Report Type: 
  Country: None (occurrence: None)
  Receive Date: 20110518
  Receipt Date: 20110509
  Transmission Date: 20111010
  Serious: Yes (Other)
  Sender: FDA-Public Use
  Company Number: US-CEPHALON-2011001674

PATIENT
  Sex: Female
  Weight: 73 kg

DRUGS (2)
  1. PROVIGIL [Suspect]
     Indication: SOMNOLENCE
     Route: 048
     Dates: start: 20110401
  2. PROVIGIL [Suspect]
     Indication: SLEEP APNOEA SYNDROME
     Route: 048
     Dates: start: 20110308, end: 20110402

REACTIONS (1)
  - SUPRAVENTRICULAR TACHYCARDIA [None]
